FAERS Safety Report 7376494-9 (Version None)
Quarter: 2011Q1

REPORT INFORMATION
  Report Type: 
  Country: None (occurrence: None)
  Receive Date: 20110325
  Receipt Date: 20110322
  Transmission Date: 20110831
  Serious: Yes (Other)
  Sender: FDA-Public Use
  Company Number: US-PFIZER INC-2011034171

PATIENT
  Sex: Female

DRUGS (5)
  1. POTASSIUM [Concomitant]
     Dosage: UNK
  2. CELEXA [Concomitant]
     Dosage: UNK
  3. ARTHROTEC [Suspect]
     Indication: ARTHRALGIA
     Dosage: 50/200 MG/I?G, 2X/DAY
     Route: 048
     Dates: start: 20110214, end: 20110215
  4. ARTHROTEC [Suspect]
     Dosage: 180 MG, 2X/WEEK
  5. TENORETIC [Concomitant]
     Dosage: UNK

REACTIONS (3)
  - THINKING ABNORMAL [None]
  - DRY MOUTH [None]
  - SPEECH DISORDER [None]
